FAERS Safety Report 5453176-1 (Version None)
Quarter: 2007Q3

REPORT INFORMATION
  Report Type: 
  Country: None (occurrence: None)
  Receive Date: 20070914
  Receipt Date: 20070903
  Transmission Date: 20080115
  Serious: Yes (Hospitalization)
  Sender: FDA-Public Use
  Company Number: GB-PFIZER INC-2007074559

PATIENT
  Age: 55 Year
  Sex: Female
  Weight: 60 kg

DRUGS (10)
  1. NEURONTIN [Suspect]
     Indication: NEURALGIA
     Route: 048
  2. ALFENTANIL [Suspect]
     Indication: ANAESTHESIA
     Route: 042
     Dates: start: 20050701, end: 20061201
  3. FENTANYL [Suspect]
     Indication: ANAESTHESIA
     Route: 042
     Dates: start: 20050701, end: 20061201
  4. ISOFLURANE [Suspect]
     Indication: ANAESTHESIA
     Route: 055
     Dates: start: 20060601, end: 20060601
  5. PROPOFOL [Suspect]
     Indication: ANAESTHESIA
     Route: 042
     Dates: start: 20050701, end: 20060601
  6. SEVOFLURANE [Suspect]
     Indication: ANAESTHESIA
     Route: 055
     Dates: start: 20061201, end: 20061201
  7. CODEINE PHOSPHATE [Concomitant]
     Route: 048
  8. DEXAMETHASONE 0.5MG TAB [Concomitant]
     Route: 048
  9. OXYGEN [Concomitant]
     Route: 055
  10. PARACETAMOL [Concomitant]
     Route: 048

REACTIONS (4)
  - DRUG INTERACTION [None]
  - DYSTONIA [None]
  - MYOTONIA [None]
  - SINUS TACHYCARDIA [None]
